FAERS Safety Report 10190286 (Version 2)
Quarter: 2014Q2

REPORT INFORMATION
  Report Type: Spontaneous
  Country: US (occurrence: US)
  Receive Date: 20140522
  Receipt Date: 20140522
  Transmission Date: 20141212
  Serious: No
  Sender: FDA-Public Use
  Company Number: US-ASTRAZENECA-2014SE02699

PATIENT
  Age: 41 Year
  Sex: Female
  Weight: 81.6 kg

DRUGS (6)
  1. PULMICORT [Suspect]
     Indication: ASTHMA
     Dosage: 2 PUFFS DAILY, TIME FRAME APPROXIMATELY 10 YEARS AGO
     Route: 055
  2. PULMICORT [Suspect]
     Indication: ASTHMA
     Dosage: 180 MCG, 2 PUFFS TWICE DAILY
     Route: 055
     Dates: start: 2009
  3. PULMICORT [Suspect]
     Indication: ASTHMA
     Dosage: ONE INHALATION IN MORNING AND TWO INHALATIONS AT NIGHT
     Route: 055
  4. BUSPAR [Concomitant]
     Indication: FIBROMYALGIA
     Dosage: 15-20MG DAILY
     Dates: start: 2004
  5. CLARITIN [Concomitant]
     Indication: ASTHMA
  6. CLARITIN [Concomitant]
     Indication: MULTIPLE ALLERGIES

REACTIONS (9)
  - Malaise [Unknown]
  - Multiple allergies [Unknown]
  - Dysgeusia [Unknown]
  - Dry mouth [Recovered/Resolved]
  - Palpitations [Unknown]
  - Adverse drug reaction [Unknown]
  - Nervousness [Unknown]
  - Intentional product misuse [Unknown]
  - Drug effect increased [Unknown]
